APPROVED DRUG PRODUCT: ARIPIPRAZOLE
Active Ingredient: ARIPIPRAZOLE
Strength: 2MG
Dosage Form/Route: TABLET;ORAL
Application: A205589 | Product #001
Applicant: LUPIN INC
Approved: Mar 18, 2024 | RLD: No | RS: No | Type: DISCN